FAERS Safety Report 23876050 (Version 2)
Quarter: 2024Q2

REPORT INFORMATION
  Report Type: Spontaneous
  Country: DE (occurrence: DE)
  Receive Date: 20240520
  Receipt Date: 20240528
  Transmission Date: 20240716
  Serious: Yes (Other)
  Sender: FDA-Public Use
  Company Number: None

PATIENT
  Age: 39 Year
  Sex: Male
  Weight: 91 kg

DRUGS (2)
  1. ESCITALOPRAM [Suspect]
     Active Substance: ESCITALOPRAM OXALATE
     Indication: Depression
     Dosage: 5 MILLIGRAM
     Route: 048
     Dates: start: 20201201, end: 20240301
  2. ESCITALOPRAM [Suspect]
     Active Substance: ESCITALOPRAM OXALATE
     Indication: Anxiety disorder

REACTIONS (10)
  - Erectile dysfunction [Not Recovered/Not Resolved]
  - Genital burning sensation [Not Recovered/Not Resolved]
  - Emotional poverty [Not Recovered/Not Resolved]
  - Genital anaesthesia [Not Recovered/Not Resolved]
  - Genital pain [Not Recovered/Not Resolved]
  - Loss of libido [Not Recovered/Not Resolved]
  - Head discomfort [Unknown]
  - Neuralgia [Not Recovered/Not Resolved]
  - Sexual dysfunction [Not Recovered/Not Resolved]
  - Paraesthesia [Unknown]

NARRATIVE: CASE EVENT DATE: 20240401
